FAERS Safety Report 9438972 (Version 1)
Quarter: 2013Q3

REPORT INFORMATION
  Report Type: Spontaneous
  Country: IN (occurrence: IN)
  Receive Date: 20130802
  Receipt Date: 20130802
  Transmission Date: 20140515
  Serious: Yes (Death, Other)
  Sender: FDA-Public Use
  Company Number: PHHY2013IN081591

PATIENT
  Age: 7 Year
  Sex: Male

DRUGS (10)
  1. CYTARABINE [Suspect]
     Indication: ACUTE LYMPHOCYTIC LEUKAEMIA
  2. FLUCONAZOLE [Suspect]
     Route: 042
  3. PIPERACILLIN+TAZOBACTAM [Suspect]
     Indication: PYREXIA
  4. AMIKACIN [Suspect]
     Indication: PYREXIA
  5. MEROPENEM [Suspect]
     Indication: PYREXIA
  6. VANCOMYCIN [Suspect]
     Indication: PYREXIA
  7. CEFTAZIDIME [Suspect]
     Indication: PYREXIA
  8. TEICOPLANIN [Suspect]
     Indication: PYREXIA
  9. GENTAMICIN [Suspect]
     Indication: PYREXIA
  10. AMPHOTERICIN B, LIPOSOME [Suspect]

REACTIONS (13)
  - Death [Fatal]
  - Renal failure acute [Unknown]
  - Metabolic acidosis [Unknown]
  - Septic shock [Unknown]
  - Splenic infarction [Unknown]
  - Renal infarct [Unknown]
  - Febrile neutropenia [Unknown]
  - Cellulitis gangrenous [Unknown]
  - Endocarditis candida [Unknown]
  - Cardiac valve vegetation [Unknown]
  - Neutropenia [Recovered/Resolved]
  - Pyrexia [Not Recovered/Not Resolved]
  - Drug ineffective [Unknown]
